FAERS Safety Report 7636124-5 (Version None)
Quarter: 2011Q3

REPORT INFORMATION
  Report Type: 
  Country: None (occurrence: None)
  Receive Date: 20110726
  Receipt Date: 20110720
  Transmission Date: 20111222
  Serious: Yes (Hospitalization)
  Sender: FDA-Public Use
  Company Number: FR-ROCHE-791426

PATIENT
  Sex: Female

DRUGS (7)
  1. IKOREL [Concomitant]
  2. ALDALIX [Concomitant]
  3. NEXIUM [Concomitant]
  4. NICARDIPINE HCL [Concomitant]
  5. SECTRAL [Concomitant]
  6. ROCEPHIN [Suspect]
     Indication: SIGMOIDITIS
     Route: 042
     Dates: start: 20110603, end: 20110608
  7. ASPIRIN [Concomitant]

REACTIONS (2)
  - ARTHRITIS [None]
  - PYREXIA [None]
